FAERS Safety Report 24538822 (Version 2)
Quarter: 2024Q4

REPORT INFORMATION
  Report Type: Spontaneous
  Country: CN (occurrence: CN)
  Receive Date: 20241023
  Receipt Date: 20241107
  Transmission Date: 20250115
  Serious: Yes (Death, Hospitalization, Other)
  Sender: AUROBINDO
  Company Number: CN-AUROBINDO-AUR-APL-2024-051719

PATIENT
  Age: 14 Year
  Sex: Female

DRUGS (2)
  1. AMLODIPINE BESYLATE [Suspect]
     Active Substance: AMLODIPINE BESYLATE
     Indication: Product used for unknown indication
     Dosage: 140 MILLIGRAM
     Route: 048
  2. AMLODIPINE BESYLATE [Suspect]
     Active Substance: AMLODIPINE BESYLATE
     Dosage: 420 MILLIGRAM
     Route: 048

REACTIONS (8)
  - Toxicity to various agents [Fatal]
  - Dyspnoea [Fatal]
  - Dizziness [Fatal]
  - Restlessness [Fatal]
  - Nausea [Fatal]
  - Vomiting [Fatal]
  - Irritability [Fatal]
  - Overdose [Fatal]
